FAERS Safety Report 9311743 (Version 2)
Quarter: 2013Q2

REPORT INFORMATION
  Report Type: Spontaneous
  Country: CH (occurrence: CH)
  Receive Date: 20130528
  Receipt Date: 20130613
  Transmission Date: 20140414
  Serious: Yes (Hospitalization)
  Sender: FDA-Public Use
  Company Number: CH-PFIZER INC-2013159007

PATIENT
  Age: 82 Year
  Sex: Male

DRUGS (11)
  1. SORTIS [Suspect]
     Dosage: 20 MG, 1X/DAY
     Route: 048
     Dates: start: 2004
  2. DAXAS [Suspect]
     Dosage: 500 UG, 1X/DAY
     Route: 048
     Dates: start: 20130319, end: 201303
  3. PLAVIX [Concomitant]
     Dosage: 75 MG, 1X/DAY
     Route: 048
  4. PROCORALAN [Concomitant]
     Dosage: 5 MG- 0 -2.5 MG-0 (AS REPORTED)
     Route: 048
     Dates: end: 20130321
  5. TRIATEC [Concomitant]
     Dosage: 2.5 MG, DAILY
     Route: 048
  6. EFEXOR [Concomitant]
     Dosage: 75 MG, DAILY
     Route: 048
  7. TRANXILIUM [Concomitant]
     Dosage: 10 MG-0-0-20 MG (AS REPORTED)
     Route: 048
  8. VANNAIR [Concomitant]
     Dosage: 2 DF, 2X/DAY
     Route: 055
  9. SPIRIVA [Concomitant]
     Dosage: 18 UG, 1X/DAY
     Route: 055
  10. VENTOLIN [Concomitant]
     Dosage: 1 DF, 4X/DAY
     Route: 055
  11. ATROVENT [Concomitant]
     Dosage: 1 DF, 4X/DAY
     Route: 055

REACTIONS (4)
  - Blood creatine phosphokinase increased [Recovered/Resolved]
  - Supraventricular tachycardia [Unknown]
  - Brain natriuretic peptide increased [Unknown]
  - C-reactive protein increased [Unknown]
